FAERS Safety Report 10211331 (Version 1)
Quarter: 2014Q2

REPORT INFORMATION
  Report Type: Report from Study
  Country: US (occurrence: US)
  Receive Date: 20140602
  Receipt Date: 20140602
  Transmission Date: 20141212
  Serious: Yes (Other)
  Sender: FDA-Public Use
  Company Number: US-GLAXOSMITHKLINE-B0997635A

PATIENT
  Sex: 0

DRUGS (3)
  1. PACLITAXEL [Suspect]
     Indication: MALIGNANT NEOPLASM PROGRESSION
     Route: 042
  2. PAZOPANIB [Suspect]
     Indication: MALIGNANT NEOPLASM PROGRESSION
     Dosage: 400MG PER DAY
  3. LAPATINIB [Suspect]
     Indication: MALIGNANT NEOPLASM PROGRESSION
     Dosage: 1000MG PER DAY

REACTIONS (2)
  - Neutropenia [Unknown]
  - Thrombocytopenia [Unknown]
